FAERS Safety Report 4435008-3 (Version None)
Quarter: 2004Q3

REPORT INFORMATION
  Report Type: 
  Country: None (occurrence: None)
  Receive Date: 20040726
  Receipt Date: 20040518
  Transmission Date: 20050211
  Serious: No
  Sender: FDA-Public Use
  Company Number: USA040567275

PATIENT
  Age: 73 Year
  Sex: Female
  Weight: 70 kg

DRUGS (9)
  1. FORTEO [Suspect]
     Indication: OSTEOPOROSIS
     Dosage: 20 UG/1 DAY
     Dates: start: 20040430
  2. EVISTA [Suspect]
     Indication: OSTEOPOROSIS
     Dates: end: 20030501
  3. NEXIUM [Concomitant]
  4. ALLEGRA [Concomitant]
  5. GLUCOSAMINE [Concomitant]
  6. CITRACAL (CALCIUM CITRATE) [Concomitant]
  7. OSCAL (CALCIUM CARBONATE) [Concomitant]
  8. VITAMIN E [Concomitant]
  9. MULTIVITAMIN [Concomitant]

REACTIONS (3)
  - INJECTION SITE ERYTHEMA [None]
  - INJECTION SITE HAEMORRHAGE [None]
  - JOINT SWELLING [None]
